FAERS Safety Report 26014279 (Version 2)
Quarter: 2025Q4

REPORT INFORMATION
  Report Type: Spontaneous
  Country: US (occurrence: US)
  Receive Date: 20251108
  Receipt Date: 20251124
  Transmission Date: 20260117
  Serious: No
  Sender: LUPIN
  Company Number: US-LUPIN PHARMACEUTICALS INC.-2025-09965

PATIENT
  Age: 69 Year
  Weight: 72.109 kg

DRUGS (3)
  1. PREDNISOLONE ACETATE [Suspect]
     Active Substance: PREDNISOLONE ACETATE
     Indication: Optic nerve injury
     Dosage: AS PER BOX INSTRUCTIONS (2-4 TIMES DAILY, START PRIOR TO INFUSION)
     Route: 065
  2. SYNTHROID [Concomitant]
     Active Substance: LEVOTHYROXINE SODIUM
     Indication: Product used for unknown indication
     Dosage: UNK
     Route: 065
  3. ELAHERE [Concomitant]
     Active Substance: MIRVETUXIMAB SORAVTANSINE-GYNX
     Indication: Chemotherapy
     Dosage: UNK
     Route: 065

REACTIONS (3)
  - Off label use [Unknown]
  - Product label confusion [Unknown]
  - Inappropriate schedule of product administration [Unknown]
